FAERS Safety Report 14733908 (Version 1)
Quarter: 2018Q2

REPORT INFORMATION
  Report Type: Spontaneous
  Country: JP (occurrence: JP)
  Receive Date: 20180409
  Receipt Date: 20180409
  Transmission Date: 20180711
  Serious: Yes (Hospitalization, Other)
  Sender: FDA-Public Use
  Company Number: JP-GLAXOSMITHKLINE-JP2018JPN056744

PATIENT
  Age: 78 Year
  Sex: Male
  Weight: 63.2 kg

DRUGS (13)
  1. CELECOX [Concomitant]
     Active Substance: CELECOXIB
     Dosage: 100 MG, U
     Route: 048
     Dates: start: 20180325, end: 20180329
  2. TOUGHMAC E [Concomitant]
     Active Substance: AMYLASE\LIPASE\PROTEASE
     Dosage: UNK
     Route: 048
     Dates: end: 20180329
  3. OXYCONTIN [Concomitant]
     Active Substance: OXYCODONE HYDROCHLORIDE
     Dosage: 5 MG, U
     Route: 048
     Dates: start: 20180326, end: 20180329
  4. LANSOPRAZOLE. [Concomitant]
     Active Substance: LANSOPRAZOLE
     Dosage: 15 MG, U
     Route: 048
     Dates: end: 20180329
  5. MAGNESIUM OXIDE. [Concomitant]
     Active Substance: MAGNESIUM OXIDE
     Dosage: 330 MG, U
     Route: 048
     Dates: end: 20180329
  6. ALOSENN [Concomitant]
     Active Substance: SENNA LEAF
     Dosage: UNK
     Route: 048
     Dates: end: 20180329
  7. TALAVIR [Suspect]
     Active Substance: VALACYCLOVIR HYDROCHLORIDE
     Indication: HERPES ZOSTER
     Dosage: 1000 MG, UNK
     Route: 048
     Dates: start: 20180326, end: 20180328
  8. SOLON [Concomitant]
     Active Substance: SOFALCONE
     Dosage: 100 MG, U
     Route: 048
     Dates: end: 20180329
  9. NOVAMIN (JAPAN) [Concomitant]
     Dosage: 5 MG, U
     Route: 048
     Dates: end: 20180329
  10. REBAMIPIDE TABLETS [Concomitant]
     Dosage: 100 MG, U
     Route: 048
     Dates: end: 20180329
  11. LYRICA [Concomitant]
     Active Substance: PREGABALIN
     Dosage: 25 MG, U
     Route: 048
     Dates: start: 20180326, end: 20180329
  12. NAIXAN [Concomitant]
     Active Substance: NAPROXEN SODIUM
     Dosage: 100 MG, U
     Route: 048
     Dates: end: 20180329
  13. GASMOTIN [Concomitant]
     Active Substance: MOSAPRIDE CITRATE
     Dosage: UNK
     Route: 048
     Dates: end: 20180329

REACTIONS (6)
  - Myoclonus [Recovering/Resolving]
  - Muscular weakness [Unknown]
  - Acute kidney injury [Recovering/Resolving]
  - Dysarthria [Unknown]
  - Incontinence [Unknown]
  - Gait disturbance [Unknown]

NARRATIVE: CASE EVENT DATE: 20180328
